FAERS Safety Report 6249782-7 (Version None)
Quarter: 2009Q2

REPORT INFORMATION
  Report Type: 
  Country: None (occurrence: None)
  Receive Date: 20090629
  Receipt Date: 20090622
  Transmission Date: 20091009
  Serious: Yes (Hospitalization)
  Sender: FDA-Public Use
  Company Number: US-B.I. PHARMACEUTICALS,INC./RIDGEFIELD-2009-BP-07567BP

PATIENT
  Sex: Female
  Weight: 54 kg

DRUGS (4)
  1. MELOXICAM [Suspect]
     Indication: ARTHRITIS
     Route: 048
     Dates: start: 20081120, end: 20090602
  2. ARTHROTEC [Suspect]
     Indication: ARTHRITIS
     Route: 048
     Dates: start: 20081010, end: 20081119
  3. SOMA [Concomitant]
     Dates: start: 20081016
  4. VICODIN ES [Concomitant]
     Dates: start: 20090312

REACTIONS (1)
  - DUODENAL ULCER [None]
